FAERS Safety Report 5951703-9 (Version None)
Quarter: 2008Q4

REPORT INFORMATION
  Report Type: 
  Country: None (occurrence: None)
  Receive Date: 20081113
  Receipt Date: 20081106
  Transmission Date: 20090506
  Serious: Yes (Other)
  Sender: FDA-Public Use
  Company Number: US-TYCO HEALTHCARE/MALLINCKRODT-T200801746

PATIENT

DRUGS (6)
  1. SODIUM IODIDE I 131 [Suspect]
     Indication: THYROID CANCER METASTATIC
     Dosage: 3000 MBQ, SINGLE ABLATIVE DOSE
  2. SODIUM IODIDE I 131 [Suspect]
     Dosage: 5000 MBQ, GIVEN AT 3 MONTHLY INTERVALS
  3. SODIUM IODIDE I 131 [Suspect]
     Dosage: 5000 MBQ, GIVEN AT 3 MONTHLY INTERVALS
  4. SODIUM IODIDE I 131 [Suspect]
     Dosage: 5000 MBQ, GIVEN AT 3 MONTHLY INTERVALS
  5. SODIUM IODIDE I 131 [Suspect]
     Dosage: 5000 MBQ, GIVEN AT 3 MONTHLY INTERVALS
  6. TRIIODOTHYRONINE [Concomitant]
     Indication: TRI-IODOTHYRONINE ABNORMAL
     Dosage: 20 UG, TID

REACTIONS (1)
  - ACUTE PROMYELOCYTIC LEUKAEMIA [None]
